FAERS Safety Report 7310428-8 (Version None)
Quarter: 2011Q1

REPORT INFORMATION
  Report Type: 
  Country: None (occurrence: None)
  Receive Date: 20110224
  Receipt Date: 20100810
  Transmission Date: 20110831
  Serious: No
  Sender: FDA-Public Use
  Company Number: US-BRISTOL-MYERS SQUIBB COMPANY-15236219

PATIENT
  Age: 70 Year
  Sex: Male
  Weight: 116 kg

DRUGS (1)
  1. METFORMIN HCL [Suspect]
     Dosage: 2 TABS(10MG)

REACTIONS (1)
  - DIARRHOEA [None]
